FAERS Safety Report 8530643-5 (Version None)
Quarter: 2012Q3

REPORT INFORMATION
  Report Type: 
  Country: None (occurrence: None)
  Receive Date: 20120723
  Receipt Date: 20120718
  Transmission Date: 20120928
  Serious: Yes (Hospitalization)
  Sender: FDA-Public Use
  Company Number: SE-ROCHE-1073795

PATIENT
  Sex: Male

DRUGS (9)
  1. ALVEDON [Concomitant]
  2. CETIRIZINE HCL [Concomitant]
  3. MABTHERA [Suspect]
     Indication: RHEUMATOID ARTHRITIS
     Route: 042
     Dates: start: 20120516, end: 20120516
  4. OMEPRAZOLE [Concomitant]
  5. LERGIGAN [Concomitant]
  6. IMOVANE [Concomitant]
  7. BUPRENORPHINE [Concomitant]
  8. PREDNISOLONE [Concomitant]
  9. PREDNISONE [Concomitant]

REACTIONS (1)
  - CONVULSION [None]
